FAERS Safety Report 11710593 (Version 2)
Quarter: 2015Q4

REPORT INFORMATION
  Report Type: Spontaneous
  Country: US (occurrence: US)
  Receive Date: 20151104
  Receipt Date: 20151110
  Transmission Date: 20160304
  Serious: No
  Sender: FDA-Public Use
  Company Number: US-ELI_LILLY_AND_COMPANY-US201101000767

PATIENT
  Sex: Female

DRUGS (6)
  1. PREDNISONE. [Concomitant]
     Active Substance: PREDNISONE
  2. FORTEO [Suspect]
     Active Substance: TERIPARATIDE
     Dosage: 20 UG, QD
  3. CALCIUM [Concomitant]
     Active Substance: CALCIUM
     Dosage: 1200 MG, QD
  4. FORTEO [Suspect]
     Active Substance: TERIPARATIDE
     Indication: OSTEOPOROSIS
     Dosage: 20 UG, QD
  5. FORTEO [Suspect]
     Active Substance: TERIPARATIDE
     Dosage: 20 UG, QD
  6. FORTEO [Suspect]
     Active Substance: TERIPARATIDE
     Dosage: 20 UG, QD

REACTIONS (18)
  - Injury [Recovered/Resolved]
  - Alopecia [Unknown]
  - Arthralgia [Unknown]
  - Injection site bruising [Unknown]
  - Hypoaesthesia [Unknown]
  - Pain of skin [Unknown]
  - Arthritis [Unknown]
  - Eye disorder [Unknown]
  - Pain [Recovered/Resolved]
  - Peroneal muscular atrophy [Unknown]
  - Polymyalgia rheumatica [Unknown]
  - Temporal arteritis [Not Recovered/Not Resolved]
  - Decreased appetite [Unknown]
  - Pain in jaw [Unknown]
  - Facial pain [Unknown]
  - Constipation [Unknown]
  - Dizziness [Unknown]
  - Contusion [Unknown]
